FAERS Safety Report 19961119 (Version 4)
Quarter: 2022Q2

REPORT INFORMATION
  Report Type: Report from Study
  Country: IN (occurrence: IN)
  Receive Date: 20211016
  Receipt Date: 20220516
  Transmission Date: 20220721
  Serious: Yes (Other)
  Sender: FDA-Public Use
  Company Number: IN-NOVARTISPH-NVSC2019IN060523

PATIENT
  Age: 41 Year
  Sex: Female

DRUGS (11)
  1. ELTROMBOPAG OLAMINE [Suspect]
     Active Substance: ELTROMBOPAG OLAMINE
     Indication: Immune thrombocytopenia
     Dosage: 25 MG, QD
     Route: 065
     Dates: start: 20191115, end: 202003
  2. ELTROMBOPAG OLAMINE [Suspect]
     Active Substance: ELTROMBOPAG OLAMINE
     Dosage: 25 MG (5 DAYS A WEEK)
     Route: 065
     Dates: start: 202003, end: 20200317
  3. ELTROMBOPAG OLAMINE [Suspect]
     Active Substance: ELTROMBOPAG OLAMINE
     Dosage: 25 MG, QOD
     Route: 065
     Dates: start: 20200318
  4. ELTROMBOPAG OLAMINE [Suspect]
     Active Substance: ELTROMBOPAG OLAMINE
     Dosage: 25 MG, QOD (ALTERNATE DAY)
     Route: 065
     Dates: start: 20200401, end: 20201111
  5. ELTROMBOPAG OLAMINE [Suspect]
     Active Substance: ELTROMBOPAG OLAMINE
     Dosage: 25 MG, QD (TWICE WEEK)
     Route: 065
     Dates: start: 20201112, end: 20210112
  6. ELTROMBOPAG OLAMINE [Suspect]
     Active Substance: ELTROMBOPAG OLAMINE
     Dosage: 25 MG, QD
     Route: 048
     Dates: start: 20210113, end: 20210711
  7. ELTROMBOPAG OLAMINE [Suspect]
     Active Substance: ELTROMBOPAG OLAMINE
     Dosage: 25 MG, QOD (ALTERNATE DAY)
     Route: 065
     Dates: start: 20210712, end: 20211006
  8. ELTROMBOPAG OLAMINE [Suspect]
     Active Substance: ELTROMBOPAG OLAMINE
     Dosage: 25 MG, QD (THRICE IN WEEK)
     Route: 065
     Dates: start: 20211007, end: 20211126
  9. ELTROMBOPAG OLAMINE [Suspect]
     Active Substance: ELTROMBOPAG OLAMINE
     Dosage: 25 MG, QD (TWICE IN WEEK)
     Route: 065
     Dates: start: 20211127, end: 20220216
  10. ELTROMBOPAG OLAMINE [Suspect]
     Active Substance: ELTROMBOPAG OLAMINE
     Dosage: 25 MG, QOD (ALTERNATE DAY)
     Route: 065
     Dates: start: 20220217, end: 20220509
  11. ELTROMBOPAG OLAMINE [Suspect]
     Active Substance: ELTROMBOPAG OLAMINE
     Dosage: 25 MG, QD (4 DAYS IN WEEK)
     Route: 065
     Dates: start: 20220510

REACTIONS (3)
  - Hyperthyroidism [Unknown]
  - Headache [Unknown]
  - Platelet count decreased [Recovering/Resolving]

NARRATIVE: CASE EVENT DATE: 20191129
